FAERS Safety Report 11201813 (Version 1)
Quarter: 2015Q2

REPORT INFORMATION
  Report Type: Spontaneous
  Country: US (occurrence: US)
  Receive Date: 20150619
  Receipt Date: 20150619
  Transmission Date: 20150821
  Serious: No
  Sender: FDA-Public Use
  Company Number: US-TEVA-571799ACC

PATIENT
  Sex: Female
  Weight: 76.27 kg

DRUGS (3)
  1. PLAN B ONE-STEP [Suspect]
     Active Substance: LEVONORGESTREL
     Dosage: 1.5 MILLIGRAM DAILY;
     Route: 048
     Dates: start: 20150612, end: 20150612
  2. PLAN B ONE-STEP [Suspect]
     Active Substance: LEVONORGESTREL
     Indication: POST COITAL CONTRACEPTION
     Dosage: 1.5 MILLIGRAM DAILY;
     Route: 048
     Dates: start: 2004, end: 2004
  3. PLAN B ONE-STEP [Suspect]
     Active Substance: LEVONORGESTREL
     Dosage: 1.5 MILLIGRAM DAILY;
     Route: 048
     Dates: start: 201412, end: 201412

REACTIONS (7)
  - Nausea [Unknown]
  - Headache [Unknown]
  - Menstruation irregular [Recovered/Resolved]
  - Menstrual disorder [Recovered/Resolved]
  - Dysmenorrhoea [Unknown]
  - Anxiety [Unknown]
  - Hair growth abnormal [Unknown]

NARRATIVE: CASE EVENT DATE: 2004
